FAERS Safety Report 7236928-7 (Version None)
Quarter: 2011Q1

REPORT INFORMATION
  Report Type: 
  Country: None (occurrence: None)
  Receive Date: 20110121
  Receipt Date: 20110113
  Transmission Date: 20110831
  Serious: Yes (Hospitalization)
  Sender: FDA-Public Use
  Company Number: CO-AMGEN-COLSP2011002992

PATIENT

DRUGS (2)
  1. ENBREL [Suspect]
     Indication: ANKYLOSING SPONDYLITIS
     Dosage: UNK
     Route: 058
     Dates: start: 20080801
  2. MEDROL [Suspect]
     Indication: ANKYLOSING SPONDYLITIS
     Dosage: 2 MG, 1X/DAY
     Route: 048

REACTIONS (2)
  - PRODUCTIVE COUGH [None]
  - MYOCARDIAL INFARCTION [None]
